FAERS Safety Report 24935048 (Version 1)
Quarter: 2025Q1

REPORT INFORMATION
  Report Type: Spontaneous
  Country: EG (occurrence: EG)
  Receive Date: 20250206
  Receipt Date: 20250206
  Transmission Date: 20250409
  Serious: Yes (Hospitalization, Other)
  Sender: HIKMA
  Company Number: EG-HIKMA PHARMACEUTICALS-EG-H14001-25-00978

PATIENT
  Age: 54 Year
  Sex: Female
  Weight: 98 kg

DRUGS (5)
  1. DOCETAXEL [Suspect]
     Active Substance: DOCETAXEL
     Indication: Breast cancer
     Dosage: 150 MILLIGRAM, 3W
     Route: 065
  2. DEXAMETHASONE [Concomitant]
     Active Substance: DEXAMETHASONE
     Indication: Chemotherapy side effect prophylaxis
     Route: 065
  3. GRANITRYL [Concomitant]
     Indication: Chemotherapy side effect prophylaxis
     Route: 065
  4. PIRAFENE [Concomitant]
     Indication: Chemotherapy side effect prophylaxis
     Route: 065
  5. ZOMEGIPRAL [Concomitant]
     Indication: Chemotherapy side effect prophylaxis
     Route: 065

REACTIONS (7)
  - Neuropathy peripheral [Unknown]
  - Wheelchair user [Unknown]
  - Gait disturbance [Unknown]
  - Dermatitis [Unknown]
  - Rash [Unknown]
  - Vomiting [Unknown]
  - Hypersensitivity [Unknown]

NARRATIVE: CASE EVENT DATE: 20241202
